FAERS Safety Report 4558892-1 (Version None)
Quarter: 2005Q1

REPORT INFORMATION
  Report Type: 
  Country: None (occurrence: None)
  Receive Date: 20050121
  Receipt Date: 20050121
  Transmission Date: 20050727
  Serious: Yes (Life-Threatening)
  Sender: FDA-Public Use
  Company Number: None

PATIENT
  Age: 73 Year
  Sex: Male
  Weight: 90.2658 kg

DRUGS (1)
  1. VANCOMYCIN [Suspect]
     Indication: SKIN GRAFT INFECTION
     Dosage: 1 GM  SINGLE DOSE  INTRAVENOUS
     Route: 042
     Dates: start: 20050114, end: 20050114

REACTIONS (6)
  - ANAPHYLACTIC REACTION [None]
  - INFUSION RELATED REACTION [None]
  - LARYNGEAL OEDEMA [None]
  - OROPHARYNGEAL SWELLING [None]
  - SWELLING FACE [None]
  - SWOLLEN TONGUE [None]
